FAERS Safety Report 12554556 (Version 1)
Quarter: 2016Q3

REPORT INFORMATION
  Report Type: Spontaneous
  Country: US (occurrence: US)
  Receive Date: 20160713
  Receipt Date: 20160713
  Transmission Date: 20161109
  Serious: Yes (Other)
  Sender: FDA-Public Use
  Company Number: US-SA-2016SA125318

PATIENT
  Sex: Female

DRUGS (6)
  1. SOLOSTAR [Suspect]
     Active Substance: DEVICE
     Indication: TYPE 1 DIABETES MELLITUS
     Dates: start: 2006
  2. SOLOSTAR [Suspect]
     Active Substance: DEVICE
     Indication: TYPE 1 DIABETES MELLITUS
     Dates: start: 2011
  3. LANTUS SOLOSTAR [Suspect]
     Active Substance: INSULIN GLARGINE
     Indication: TYPE 1 DIABETES MELLITUS
     Dosage: DOSE: 20 UNITS IN MORNING AND 20 UNITS IN THE EVENING. DOSE:20 UNIT(S)
     Route: 065
     Dates: start: 2006
  4. APIDRA SOLOSTAR [Suspect]
     Active Substance: INSULIN GLULISINE
     Indication: TYPE 1 DIABETES MELLITUS
     Dosage: DOSE:10-15 UNITS
     Route: 065
     Dates: start: 2011
  5. FLEXTOUCH [Concomitant]
     Active Substance: DEVICE
  6. NOVOLOG [Concomitant]
     Active Substance: INSULIN ASPART

REACTIONS (8)
  - Urinary tract infection [Unknown]
  - Visual impairment [Unknown]
  - Blood glucose increased [Unknown]
  - Product use issue [Unknown]
  - Eye disorder [Unknown]
  - Fibromyalgia [Unknown]
  - Back disorder [Unknown]
  - Device issue [Unknown]

NARRATIVE: CASE EVENT DATE: 2006
